FAERS Safety Report 6697784-9 (Version None)
Quarter: 2010Q2

REPORT INFORMATION
  Report Type: 
  Country: None (occurrence: None)
  Receive Date: 20100423
  Receipt Date: 20100413
  Transmission Date: 20101027
  Serious: Yes (Hospitalization, Other)
  Sender: FDA-Public Use
  Company Number: 010166

PATIENT
  Age: 18 Year
  Sex: Female

DRUGS (2)
  1. KEPPRA [Suspect]
     Dosage: (1250 MG BID, BEGAN THERAPY ABOUT SIX MONTHS AGO)
  2. RIVOTRIL (RIVOTRIL) (NOT SPECIFIED) [Suspect]
     Indication: STATUS EPILEPTICUS
     Dosage: (2 AMPOULES INTRAVENOUS (NOT OTHERWISE SPECIFIED))
     Route: 042

REACTIONS (13)
  - ALANINE AMINOTRANSFERASE INCREASED [None]
  - ASPARTATE AMINOTRANSFERASE INCREASED [None]
  - BLOOD CREATINE PHOSPHOKINASE INCREASED [None]
  - BLOOD LACTATE DEHYDROGENASE INCREASED [None]
  - DRUG INTOLERANCE [None]
  - ELECTROENCEPHALOGRAM ABNORMAL [None]
  - GAMMA-GLUTAMYLTRANSFERASE INCREASED [None]
  - PSYCHOMOTOR SKILLS IMPAIRED [None]
  - RHABDOMYOLYSIS [None]
  - SOMNOLENCE [None]
  - SPEECH DISORDER [None]
  - STATUS EPILEPTICUS [None]
  - UNEVALUABLE EVENT [None]
